FAERS Safety Report 6637880-5 (Version None)
Quarter: 2010Q1

REPORT INFORMATION
  Report Type: 
  Country: None (occurrence: None)
  Receive Date: 20100317
  Receipt Date: 20100224
  Transmission Date: 20100710
  Serious: Yes (Other)
  Sender: FDA-Public Use
  Company Number: PHHY2010GB15039

PATIENT

DRUGS (5)
  1. RITALIN [Suspect]
     Dosage: 20 MG,UNK
  2. RITALIN [Suspect]
     Dosage: 15 MG, EVERY FOUR HOURLY, TID
  3. RITALIN LA [Suspect]
     Dosage: 40 MG, TWO ORALLY
     Route: 048
  4. ZOLPIDEM [Concomitant]
     Dosage: UNK,UNK
  5. CLONAZEPAM [Concomitant]
     Dosage: UNK,UNK

REACTIONS (5)
  - ANGER [None]
  - DEPRESSED MOOD [None]
  - FATIGUE [None]
  - INTENTIONAL SELF-INJURY [None]
  - OBSESSIVE-COMPULSIVE DISORDER [None]
